FAERS Safety Report 9034768 (Version 1)
Quarter: 2013Q1

REPORT INFORMATION
  Report Type: Spontaneous
  Country: IQ (occurrence: None)
  Receive Date: 20130118
  Receipt Date: 20130118
  Transmission Date: 20140127
  Serious: Yes (Death, Hospitalization, Disabling, Other)
  Sender: FDA-Public Use
  Company Number: 2013P1000422

PATIENT
  Age: 40 Year
  Sex: Female

DRUGS (1)
  1. AMPICILLIN [Suspect]

REACTIONS (2)
  - Stevens-Johnson syndrome [None]
  - General physical health deterioration [None]
